FAERS Safety Report 5226602-0 (Version None)
Quarter: 2007Q1

REPORT INFORMATION
  Report Type: 
  Country: None (occurrence: None)
  Receive Date: 20070201
  Receipt Date: 20070117
  Transmission Date: 20070707
  Serious: Yes (Other)
  Sender: FDA-Public Use
  Company Number: US-AMGEN-STX188594

PATIENT
  Sex: Male
  Weight: 108.1 kg

DRUGS (1)
  1. ENBREL [Suspect]
     Indication: PSORIASIS
     Route: 065
     Dates: start: 20060612, end: 20060623

REACTIONS (6)
  - FATIGUE [None]
  - HEADACHE [None]
  - IDIOPATHIC THROMBOCYTOPENIC PURPURA [None]
  - MEMORY IMPAIRMENT [None]
  - PSORIASIS [None]
  - WHITE BLOOD CELL COUNT ABNORMAL [None]
